FAERS Safety Report 24814721 (Version 7)
Quarter: 2025Q4

REPORT INFORMATION
  Report Type: Spontaneous
  Country: US (occurrence: US)
  Receive Date: 20250107
  Receipt Date: 20251030
  Transmission Date: 20260118
  Serious: Yes (Hospitalization, Other)
  Sender: DAIICHI
  Company Number: US-DAIICHI SANKYO, INC.-DS-2025-118239-USAA

PATIENT
  Age: 52 Year
  Sex: Female

DRUGS (7)
  1. VANFLYTA [Suspect]
     Active Substance: QUIZARTINIB DIHYDROCHLORIDE
     Indication: Product used for unknown indication
     Dosage: TAKE 1 TABLET BY MOUTH EVERY DAY
     Route: 048
     Dates: start: 20250108
  2. VANFLYTA [Suspect]
     Active Substance: QUIZARTINIB DIHYDROCHLORIDE
     Dosage: 17.7 MG TAKE 2 TABLETS BY MOUTH EVERY DAY ON DAYS 5-18
     Route: 048
     Dates: start: 20250327
  3. VANFLYTA [Suspect]
     Active Substance: QUIZARTINIB DIHYDROCHLORIDE
     Dosage: 26.5 MG TAKE 2 TABLETS BY MOUTH
     Route: 048
     Dates: start: 20250630
  4. VANFLYTA [Suspect]
     Active Substance: QUIZARTINIB DIHYDROCHLORIDE
     Dosage: 26.5 MG TAKE 2 TABLETS BY MOUTH
     Route: 048
     Dates: start: 20250701
  5. VANFLYTA [Suspect]
     Active Substance: QUIZARTINIB DIHYDROCHLORIDE
     Dosage: 26.5 MG TAKE 1 TABLETS BY MOUTH
     Route: 048
     Dates: start: 20251020
  6. VANFLYTA [Suspect]
     Active Substance: QUIZARTINIB DIHYDROCHLORIDE
     Dosage: 17.7 MG
     Route: 065
  7. VANFLYTA [Suspect]
     Active Substance: QUIZARTINIB DIHYDROCHLORIDE
     Dosage: 26.5MG
     Route: 065
     Dates: start: 20251027

REACTIONS (7)
  - Epistaxis [Not Recovered/Not Resolved]
  - Cytopenia [Unknown]
  - Oral herpes [Not Recovered/Not Resolved]
  - Off label use [Unknown]
  - Therapy change [Not Recovered/Not Resolved]
  - Therapy change [Unknown]
  - Therapy change [Not Recovered/Not Resolved]

NARRATIVE: CASE EVENT DATE: 20250630
